FAERS Safety Report 9033801 (Version 1)
Quarter: 2013Q1

REPORT INFORMATION
  Report Type: Spontaneous
  Country: CA (occurrence: CA)
  Receive Date: 20130128
  Receipt Date: 20130128
  Transmission Date: 20140127
  Serious: Yes (Hospitalization, Other)
  Sender: FDA-Public Use
  Company Number: CA-AMGEN-CANSP2012073529

PATIENT
  Age: 49 Year
  Sex: Female

DRUGS (1)
  1. XGEVA [Suspect]
     Indication: NEOPLASM MALIGNANT
     Dosage: UNK

REACTIONS (5)
  - Terminal state [Unknown]
  - Bedridden [Unknown]
  - Spinal operation [Recovered/Resolved]
  - Malaise [Unknown]
  - Aphasia [Unknown]
